FAERS Safety Report 6937283-X (Version None)
Quarter: 2010Q3

REPORT INFORMATION
  Report Type: 
  Country: None (occurrence: None)
  Receive Date: 20100823
  Receipt Date: 20100813
  Transmission Date: 20110219
  Serious: Yes (Other)
  Sender: FDA-Public Use
  Company Number: B0659229A

PATIENT
  Sex: Male
  Weight: 70 kg

DRUGS (5)
  1. ZANTAC [Suspect]
     Dosage: 150MG TWICE PER DAY
     Route: 048
     Dates: start: 20100527, end: 20100601
  2. ACETYLSALICYLZUUR CARDIO [Concomitant]
     Dosage: 40MG PER DAY
     Route: 065
     Dates: start: 20060101
  3. SIMVASTATIN [Concomitant]
     Dosage: 20MG PER DAY
     Route: 065
     Dates: start: 20060101
  4. DIOVAN [Concomitant]
     Dosage: 80MG PER DAY
     Route: 065
     Dates: start: 20060101
  5. NALCROM [Concomitant]
     Route: 048
     Dates: start: 19920101

REACTIONS (8)
  - ANGIOEDEMA [None]
  - DEPRESSED MOOD [None]
  - DYSURIA [None]
  - EYE SWELLING [None]
  - FATIGUE [None]
  - HEADACHE [None]
  - INFLUENZA LIKE ILLNESS [None]
  - MENTAL IMPAIRMENT [None]
